FAERS Safety Report 21529801 (Version 1)
Quarter: 2022Q4

REPORT INFORMATION
  Report Type: Spontaneous
  Country: US (occurrence: US)
  Receive Date: 20221031
  Receipt Date: 20221031
  Transmission Date: 20230113
  Serious: Yes (Hospitalization, Other)
  Sender: FDA-Public Use
  Company Number: US-OTSUKA-2022_049889

PATIENT
  Age: 23 Year
  Sex: Male

DRUGS (3)
  1. ABILIFY [Suspect]
     Active Substance: ARIPIPRAZOLE
     Indication: Schizophrenia
     Dosage: 30 MG (FOR ABOUT 6 MONTHS)
     Route: 065
  2. ZYPREXA [Suspect]
     Active Substance: OLANZAPINE
     Indication: Product used for unknown indication
     Dosage: 40 MG
     Route: 065
  3. ZYPREXA [Suspect]
     Active Substance: OLANZAPINE
     Dosage: HIGHER DOSE THAN BEFORE
     Route: 065

REACTIONS (4)
  - General physical health deterioration [Unknown]
  - Disorganised speech [Unknown]
  - Hallucination [Unknown]
  - Catatonia [Unknown]
